FAERS Safety Report 18616239 (Version 1)
Quarter: 2020Q4

REPORT INFORMATION
  Report Type: Spontaneous
  Country: US (occurrence: US)
  Receive Date: 20201215
  Receipt Date: 20201215
  Transmission Date: 20210114
  Serious: No
  Sender: FDA-Public Use
  Company Number: US-GLOBAL BLOOD THERAPEUTICS INC-US-GBT-20-02638

PATIENT
  Age: 37 Year
  Sex: Male

DRUGS (3)
  1. OXBRYTA [Suspect]
     Active Substance: VOXELOTOR
     Indication: PRODUCT USED FOR UNKNOWN INDICATION
     Dates: end: 2020
  2. OXBRYTA [Suspect]
     Active Substance: VOXELOTOR
     Dates: start: 2020, end: 2020
  3. OXBRYTA [Suspect]
     Active Substance: VOXELOTOR
     Dates: start: 2020

REACTIONS (2)
  - Diarrhoea [Not Recovered/Not Resolved]
  - Headache [Not Recovered/Not Resolved]

NARRATIVE: CASE EVENT DATE: 20200827
